FAERS Safety Report 12295655 (Version 1)
Quarter: 2016Q2

REPORT INFORMATION
  Report Type: Spontaneous
  Country: US (occurrence: US)
  Receive Date: 20160422
  Receipt Date: 20160422
  Transmission Date: 20160815
  Serious: No
  Sender: FDA-Public Use
  Company Number: US-CELGENEUS-USA-2015093881

PATIENT
  Age: 75 Year
  Sex: Male

DRUGS (2)
  1. VELCADE [Concomitant]
     Active Substance: BORTEZOMIB
     Indication: PLASMA CELL MYELOMA
     Route: 065
  2. REVLIMID [Suspect]
     Active Substance: LENALIDOMIDE
     Indication: PLASMA CELL MYELOMA
     Dosage: 15 MILLIGRAM
     Route: 048
     Dates: start: 20150713

REACTIONS (10)
  - Sciatica [Not Recovered/Not Resolved]
  - Dyspnoea [Not Recovered/Not Resolved]
  - Insomnia [Unknown]
  - Weight decreased [Not Recovered/Not Resolved]
  - Musculoskeletal chest pain [Not Recovered/Not Resolved]
  - Red blood cell count decreased [Not Recovered/Not Resolved]
  - Constipation [Not Recovered/Not Resolved]
  - Abdominal distension [Not Recovered/Not Resolved]
  - Malaise [Unknown]
  - Posture abnormal [Not Recovered/Not Resolved]

NARRATIVE: CASE EVENT DATE: 2015
